FAERS Safety Report 6163598-1 (Version None)
Quarter: 2009Q2

REPORT INFORMATION
  Report Type: 
  Country: None (occurrence: None)
  Receive Date: 20090422
  Receipt Date: 20080924
  Transmission Date: 20091009
  Serious: Yes (Disabling, Other)
  Sender: FDA-Public Use
  Company Number: MY-ROCHE-589066

PATIENT
  Age: 33 Year
  Sex: Male

DRUGS (2)
  1. GANCICLOVIR SODIUM [Suspect]
     Dosage: ROUTE: INTRAVENOUS; INDUCTION; FORM REPORTED: INJECTION
     Route: 050
  2. GANCICLOVIR SODIUM [Suspect]
     Dosage: ROUTE: INTRAVITREAL; DOSE: 2.0 MG/0.1 ML
     Route: 050

REACTIONS (2)
  - BLINDNESS UNILATERAL [None]
  - TUBERCULOSIS [None]
